FAERS Safety Report 8249481-6 (Version None)
Quarter: 2012Q2

REPORT INFORMATION
  Report Type: 
  Country: None (occurrence: None)
  Receive Date: 20120402
  Receipt Date: 20120321
  Transmission Date: 20120825
  Serious: Yes (Hospitalization, Other)
  Sender: FDA-Public Use
  Company Number: CA-AMGEN-CANSP2011060893

PATIENT
  Age: 31 Year
  Sex: Male

DRUGS (3)
  1. ENBREL [Suspect]
     Dosage: 50 MG, QWK
     Dates: start: 20090802
  2. NAPROXEN [Concomitant]
     Dosage: 500 MG, BID
  3. ENBREL [Suspect]
     Indication: PSORIASIS
     Dosage: 50 MG, 2 TIMES/WK
     Route: 058
     Dates: start: 20090730, end: 20111221

REACTIONS (3)
  - HYPOAESTHESIA [None]
  - PARAESTHESIA [None]
  - NECROTISING FASCIITIS [None]
